FAERS Safety Report 14833154 (Version 1)
Quarter: 2018Q2

REPORT INFORMATION
  Report Type: Spontaneous
  Country: US (occurrence: US)
  Receive Date: 20180501
  Receipt Date: 20180501
  Transmission Date: 20180711
  Serious: Yes (Hospitalization, Other)
  Sender: FDA-Public Use
  Company Number: US-ZYDUS-019872

PATIENT
  Age: 13 Year
  Sex: Female

DRUGS (3)
  1. CODEINE [Suspect]
     Active Substance: CODEINE
     Indication: PRODUCT USED FOR UNKNOWN INDICATION
     Route: 065
  2. MORPHINE/MORPHINE HYDROCHLORIDE/MORPHINE SULFATE/MORPHINE TARTRATE [Suspect]
     Active Substance: MORPHINE\MORPHINE HYDROCHLORIDE\MORPHINE SULFATE\MORPHINE TARTRATE
     Indication: PRODUCT USED FOR UNKNOWN INDICATION
     Route: 048
  3. HYDROMORPHONE/HYDROMORPHONE HYDROCHLORIDE [Suspect]
     Active Substance: HYDROMORPHONE
     Indication: PRODUCT USED FOR UNKNOWN INDICATION
     Route: 065

REACTIONS (15)
  - Toxicity to various agents [Unknown]
  - Visual impairment [Unknown]
  - Acute respiratory distress syndrome [Unknown]
  - Overdose [Unknown]
  - Acute kidney injury [Recovered/Resolved]
  - Respiratory failure [Unknown]
  - Human metapneumovirus test positive [Unknown]
  - Snoring [Unknown]
  - Posterior reversible encephalopathy syndrome [Unknown]
  - Loss of consciousness [Unknown]
  - Hypoxia [Recovering/Resolving]
  - Drug dependence [Unknown]
  - Intentional overdose [None]
  - Acute chest syndrome [Unknown]
  - Somnolence [Unknown]
